FAERS Safety Report 17774305 (Version 1)
Quarter: 2020Q2

REPORT INFORMATION
  Report Type: Spontaneous
  Country: US (occurrence: US)
  Receive Date: 20200513
  Receipt Date: 20200513
  Transmission Date: 20200714
  Serious: No
  Sender: FDA-Public Use
  Company Number: US-DRREDDYS-USA/USA/20/0122642

PATIENT
  Age: 64 Year
  Sex: Female

DRUGS (1)
  1. OXAPROZIN 600 MG [Suspect]
     Active Substance: OXAPROZIN
     Indication: BACK PAIN
     Route: 048

REACTIONS (3)
  - Product quality issue [Unknown]
  - Back pain [Unknown]
  - Drug ineffective [Unknown]
